FAERS Safety Report 7304371-8 (Version None)
Quarter: 2011Q1

REPORT INFORMATION
  Report Type: 
  Country: None (occurrence: None)
  Receive Date: 20110221
  Receipt Date: 20110211
  Transmission Date: 20110831
  Serious: Yes (Hospitalization)
  Sender: FDA-Public Use
  Company Number: BR-ASTRAZENECA-2010SE16740

PATIENT
  Age: 51 Year
  Sex: Female
  Weight: 58 kg

DRUGS (7)
  1. INSULIN [Concomitant]
     Indication: DIABETES MELLITUS
     Route: 058
     Dates: start: 20050101
  2. BALCOR [Concomitant]
     Route: 048
     Dates: start: 20100101
  3. METOPROLOL TARTRATE [Suspect]
     Indication: HYPERTENSION
     Route: 048
     Dates: start: 20100101, end: 20100101
  4. SELOKEN [Suspect]
     Indication: HYPERTENSION
     Route: 048
     Dates: start: 20100201, end: 20100101
  5. BALCOR [Concomitant]
     Indication: HYPERTENSION
     Route: 048
     Dates: end: 20100101
  6. METOPROLOL TARTRATE [Suspect]
     Route: 048
     Dates: start: 20100101, end: 20100101
  7. ATENOLOL [Suspect]
     Indication: HYPERTENSION
     Route: 048
     Dates: start: 20080101, end: 20100201

REACTIONS (4)
  - CHEST PAIN [None]
  - ANGINA PECTORIS [None]
  - HEADACHE [None]
  - MALAISE [None]
